FAERS Safety Report 25142774 (Version 1)
Quarter: 2025Q1

REPORT INFORMATION
  Report Type: Report from Study
  Country: CA (occurrence: CA)
  Receive Date: 20250331
  Receipt Date: 20250331
  Transmission Date: 20250408
  Serious: Yes (Hospitalization, Other)
  Sender: ABBVIE
  Company Number: CA-ABBVIE-6196557

PATIENT
  Sex: Female

DRUGS (4)
  1. QULIPTA [Suspect]
     Active Substance: ATOGEPANT
     Indication: Migraine
     Route: 048
     Dates: start: 20230523
  2. FROVATRIPTAN [Concomitant]
     Active Substance: FROVATRIPTAN
     Indication: Product used for unknown indication
  3. NORTRIPTYLINE [Concomitant]
     Active Substance: NORTRIPTYLINE
     Indication: Product used for unknown indication
  4. BOTOX [Concomitant]
     Active Substance: ONABOTULINUMTOXINA
     Indication: Product used for unknown indication

REACTIONS (5)
  - Cholelithiasis [Unknown]
  - Dyspnoea exertional [Unknown]
  - Abdominal pain [Unknown]
  - Migraine [Unknown]
  - Pain [Not Recovered/Not Resolved]

NARRATIVE: CASE EVENT DATE: 20250101
